FAERS Safety Report 5022661-9 (Version None)
Quarter: 2006Q2

REPORT INFORMATION
  Report Type: 
  Country: None (occurrence: None)
  Receive Date: 20060609
  Receipt Date: 20030117
  Transmission Date: 20061013
  Serious: Yes (Hospitalization)
  Sender: FDA-Public Use
  Company Number: FR-ABBOTT-03P-056-0208588-00

PATIENT
  Sex: Male

DRUGS (7)
  1. RITONAVIR SOFT GELATIN CAPSULES [Suspect]
     Indication: HIV INFECTION
     Route: 048
     Dates: start: 20021213
  2. TIPRANAVIR [Concomitant]
     Indication: HIV INFECTION
     Dates: start: 20020628
  3. ABACAVIR [Concomitant]
     Indication: HIV INFECTION
     Route: 048
     Dates: start: 20020713
  4. TENOFOVIR [Concomitant]
     Indication: HIV INFECTION
     Route: 048
     Dates: start: 20020713
  5. LAMIVUDINE [Concomitant]
     Indication: HIV INFECTION
     Route: 048
     Dates: start: 20020713
  6. BACTRIM [Concomitant]
     Indication: TOXOPLASMOSIS
     Route: 048
     Dates: start: 20010622
  7. BACTRIM [Concomitant]
     Indication: ANTIBIOTIC PROPHYLAXIS

REACTIONS (1)
  - MENINGITIS [None]
